FAERS Safety Report 19303421 (Version 3)
Quarter: 2021Q3

REPORT INFORMATION
  Report Type: Spontaneous
  Country: CA (occurrence: CA)
  Receive Date: 20210525
  Receipt Date: 20210701
  Transmission Date: 20211014
  Serious: Yes (Other)
  Sender: FDA-Public Use
  Company Number: CA-PFIZER INC-2021541437

PATIENT
  Age: 55 Year
  Sex: Female

DRUGS (3)
  1. PREMARIN [Suspect]
     Active Substance: ESTROGENS, CONJUGATED
     Indication: LOWER URINARY TRACT SYMPTOMS
     Dosage: UNK, DAILY FOR 30 DAYS (TO USE EVERY MORNING)
  2. PREMARIN [Suspect]
     Active Substance: ESTROGENS, CONJUGATED
     Dosage: UNK, DAILY FOR 2 WEEKS (EVERY EVENING)
  3. PREMARIN [Suspect]
     Active Substance: ESTROGENS, CONJUGATED
     Dosage: UNK, 2X/WEEK

REACTIONS (8)
  - Condition aggravated [Not Recovered/Not Resolved]
  - Vulvovaginal pruritus [Unknown]
  - Off label use [Unknown]
  - Wrong technique in product usage process [Unknown]
  - Haemorrhage urinary tract [Not Recovered/Not Resolved]
  - Incorrect dose administered [Unknown]
  - Drug ineffective for unapproved indication [Unknown]
  - Vulvovaginal pain [Unknown]
